FAERS Safety Report 6009668-X (Version None)
Quarter: 2008Q4

REPORT INFORMATION
  Report Type: 
  Country: None (occurrence: None)
  Receive Date: 20081217
  Receipt Date: 20081028
  Transmission Date: 20090506
  Serious: No
  Sender: FDA-Public Use
  Company Number: US-BAYER-200837418NA

PATIENT
  Age: 36 Year
  Sex: Female

DRUGS (2)
  1. YAZ [Suspect]
     Indication: CONTRACEPTION
     Route: 048
     Dates: start: 20081019
  2. SPIRONOLACTONE [Concomitant]

REACTIONS (1)
  - HYPOMENORRHOEA [None]
